FAERS Safety Report 13791219 (Version 2)
Quarter: 2017Q3

REPORT INFORMATION
  Report Type: Spontaneous
  Country: US (occurrence: US)
  Receive Date: 20170725
  Receipt Date: 20170810
  Transmission Date: 20171127
  Serious: No
  Sender: FDA-Public Use
  Company Number: US-VIFOR (INTERNATIONAL) INC.-VIT-2016-08257

PATIENT
  Age: 24 Year
  Sex: Female
  Weight: 43.13 kg

DRUGS (21)
  1. SODIUM POLYSTYRENE SULFONATE. [Concomitant]
     Active Substance: SODIUM POLYSTYRENE SULFONATE
  2. OMEPRAZOLE. [Concomitant]
     Active Substance: OMEPRAZOLE
  3. LOSARTAN POTASSIUM. [Concomitant]
     Active Substance: LOSARTAN POTASSIUM
  4. DOXAZOSIN MESILATE [Concomitant]
     Active Substance: DOXAZOSIN MESYLATE
  5. VELTASSA [Suspect]
     Active Substance: PATIROMER
     Indication: HYPERKALAEMIA
     Route: 048
     Dates: start: 20160730, end: 20161125
  6. ALPRAZOLAM. [Concomitant]
     Active Substance: ALPRAZOLAM
  7. SENSIPAR [Concomitant]
     Active Substance: CINACALCET HYDROCHLORIDE
  8. NIFEDIPINE. [Concomitant]
     Active Substance: NIFEDIPINE
  9. LEVOTHYROXINE SODIUM. [Concomitant]
     Active Substance: LEVOTHYROXINE SODIUM
  10. CALCIUM ACETATE. [Concomitant]
     Active Substance: CALCIUM ACETATE
  11. HYDRALAZINE HYDROCHLORIDE. [Concomitant]
     Active Substance: HYDRALAZINE HYDROCHLORIDE
  12. METOCLOPRAMIDE HYDROCHLORIDE. [Concomitant]
     Active Substance: METOCLOPRAMIDE HYDROCHLORIDE
  13. TOPIRAMATE. [Concomitant]
     Active Substance: TOPIRAMATE
  14. AMITRIPTYLINE HYDROCHLORIDE. [Concomitant]
     Active Substance: AMITRIPTYLINE HYDROCHLORIDE
  15. ACETYLSALICYLIC ACID [Concomitant]
     Active Substance: ASPIRIN
  16. CARVEDILOL. [Concomitant]
     Active Substance: CARVEDILOL
  17. SERTRALINE HYDROCHLORIDE. [Concomitant]
     Active Substance: SERTRALINE HYDROCHLORIDE
  18. TEMAZEPAM. [Concomitant]
     Active Substance: TEMAZEPAM
  19. ONDANSETRON [Concomitant]
     Active Substance: ONDANSETRON
  20. ERGOCALCIFEROL. [Concomitant]
     Active Substance: ERGOCALCIFEROL
  21. NEXIUM [Concomitant]
     Active Substance: ESOMEPRAZOLE MAGNESIUM

REACTIONS (1)
  - Inappropriate schedule of drug administration [Unknown]

NARRATIVE: CASE EVENT DATE: 20160730
